FAERS Safety Report 17556526 (Version 2)
Quarter: 2020Q2

REPORT INFORMATION
  Report Type: Spontaneous
  Country: DE (occurrence: DE)
  Receive Date: 20200318
  Receipt Date: 20200406
  Transmission Date: 20200713
  Serious: Yes (Hospitalization, Other)
  Sender: FDA-Public Use
  Company Number: NVSC2020DE074774

PATIENT
  Sex: Female
  Weight: 57 kg

DRUGS (1)
  1. COSENTYX [Suspect]
     Active Substance: SECUKINUMAB
     Indication: PSORIASIS
     Dosage: 300 MG, QMO
     Route: 058
     Dates: start: 20160229

REACTIONS (6)
  - Visual impairment [Not Recovered/Not Resolved]
  - Attention deficit hyperactivity disorder [Not Recovered/Not Resolved]
  - Balance disorder [Unknown]
  - Dysarthria [Unknown]
  - Cerebrovascular accident [Recovered/Resolved with Sequelae]
  - Coordination abnormal [Unknown]

NARRATIVE: CASE EVENT DATE: 20191105
